FAERS Safety Report 5730835-4 (Version None)
Quarter: 2008Q2

REPORT INFORMATION
  Report Type: 
  Country: None (occurrence: None)
  Receive Date: 20080507
  Receipt Date: 20080428
  Transmission Date: 20081010
  Serious: Yes (Other)
  Sender: FDA-Public Use
  Company Number: HQWYE931624APR06

PATIENT
  Sex: Female

DRUGS (4)
  1. PREMARIN [Suspect]
     Indication: MENOPAUSAL SYMPTOMS
     Dosage: 0.625 MG (FREQUENCY UNSPECIFIED)
     Dates: start: 19800101, end: 20000101
  2. MEDROXYPROGESTERONE ACETATE [Suspect]
     Indication: MENOPAUSAL SYMPTOMS
     Dosage: 5 MG (FREQUENCY UNSPECIFIED)
     Dates: start: 19800101, end: 20000101
  3. NORETHINDRONE ACETATE [Suspect]
     Indication: MENOPAUSAL SYMPTOMS
     Dosage: 5 MG (FREQUENCY UNSPECIFIED)
     Dates: start: 19800101, end: 20000101
  4. PROVERA [Suspect]
     Indication: MENOPAUSAL SYMPTOMS
     Dosage: 5 MG (FREQUENCY UNSPECIFIED)
     Dates: start: 19800101, end: 20000101

REACTIONS (1)
  - BREAST CANCER [None]
